FAERS Safety Report 20189974 (Version 2)
Quarter: 2024Q3

REPORT INFORMATION
  Report Type: Spontaneous
  Country: FR (occurrence: FR)
  Receive Date: 20211215
  Receipt Date: 20240730
  Transmission Date: 20241016
  Serious: Yes (Life-Threatening, Other)
  Sender: MYLAN
  Company Number: None

PATIENT
  Age: 44 Year
  Sex: Male
  Weight: 52 kg

DRUGS (4)
  1. ETOPOSIDE [Interacting]
     Active Substance: ETOPOSIDE
     Indication: Anaplastic large cell lymphoma T- and null-cell types
     Dosage: 160 MILLIGRAM, CYCLE
     Route: 042
     Dates: start: 20211005, end: 20211005
  2. CARBOPLATIN [Interacting]
     Active Substance: CARBOPLATIN
     Indication: Anaplastic large cell lymphoma T- and null-cell types
     Dosage: 600 MILLIGRAM, CYCLE
     Route: 042
     Dates: start: 20211005, end: 20211005
  3. IFOSFAMIDE [Interacting]
     Active Substance: IFOSFAMIDE
     Indication: Anaplastic large cell lymphoma T- and null-cell types
     Dosage: 8000 MILLIGRAM, CYCLE
     Route: 042
     Dates: start: 20211005, end: 20211005
  4. BRENTUXIMAB VEDOTIN [Interacting]
     Active Substance: BRENTUXIMAB VEDOTIN
     Indication: Anaplastic large cell lymphoma T- and null-cell types
     Dosage: 94 MILLIGRAM, CYCLE
     Route: 042
     Dates: start: 20211005, end: 20211005

REACTIONS (4)
  - Shock haemorrhagic [Recovered/Resolved]
  - Leukopenia [Not Recovered/Not Resolved]
  - Thrombocytopenia [Not Recovered/Not Resolved]
  - Drug interaction [Not Recovered/Not Resolved]

NARRATIVE: CASE EVENT DATE: 20211007
